FAERS Safety Report 8530081 (Version 3)
Quarter: 2014Q2

REPORT INFORMATION
  Report Type: Spontaneous
  Country: JP (occurrence: JP)
  Receive Date: 20120425
  Receipt Date: 20140611
  Transmission Date: 20141212
  Serious: Yes (Hospitalization)
  Sender: FDA-Public Use
  Company Number: JP-GLAXOSMITHKLINE-B0782276A

PATIENT
  Age: 38 Year
  Sex: Female
  Weight: 60 kg

DRUGS (3)
  1. LAMICTAL [Suspect]
     Indication: EPILEPSY
     Dosage: 25MG PER DAY
     Route: 048
     Dates: start: 20110705, end: 20110809
  2. DEPAKENE [Concomitant]
     Indication: EPILEPSY
     Dosage: 200MG THREE TIMES PER DAY
     Route: 048
     Dates: end: 20110630
  3. DEPAKENE [Concomitant]
     Indication: EPILEPSY
     Dosage: 200MG THREE TIMES PER DAY
     Route: 048
     Dates: start: 20110701, end: 20110809

REACTIONS (26)
  - Drug reaction with eosinophilia and systemic symptoms [Recovering/Resolving]
  - Lymphocyte stimulation test positive [Recovering/Resolving]
  - Skin test positive [Recovering/Resolving]
  - Nasopharyngitis [Recovering/Resolving]
  - Pyrexia [Recovering/Resolving]
  - Rash [Recovering/Resolving]
  - Erythema [Recovering/Resolving]
  - Lymphadenopathy [Recovering/Resolving]
  - Liver disorder [Recovering/Resolving]
  - Rash [Recovering/Resolving]
  - Rash [Recovering/Resolving]
  - White blood cell count increased [Recovering/Resolving]
  - Eosinophil percentage increased [Recovering/Resolving]
  - Monocyte percentage increased [Recovering/Resolving]
  - Lymphocyte percentage decreased [Recovering/Resolving]
  - Aspartate aminotransferase increased [Recovering/Resolving]
  - Alanine aminotransferase increased [Recovering/Resolving]
  - Blood lactate dehydrogenase increased [Recovering/Resolving]
  - Blood alkaline phosphatase increased [Recovering/Resolving]
  - Gamma-glutamyltransferase increased [Recovering/Resolving]
  - Blood bilirubin decreased [Recovering/Resolving]
  - C-reactive protein increased [Recovering/Resolving]
  - Erythema multiforme [Recovering/Resolving]
  - Dermatitis exfoliative [Recovering/Resolving]
  - Swelling face [Recovering/Resolving]
  - Neck pain [Recovering/Resolving]
